FAERS Safety Report 8424941-3 (Version None)
Quarter: 2012Q2

REPORT INFORMATION
  Report Type: 
  Country: None (occurrence: None)
  Receive Date: 20120611
  Receipt Date: 20120605
  Transmission Date: 20120825
  Serious: No
  Sender: FDA-Public Use
  Company Number: US-PFIZER INC-2012113147

PATIENT
  Sex: Female

DRUGS (1)
  1. RAPAMUNE [Suspect]
     Indication: LYMPHANGIOPATHY
     Dosage: 2 MG, UNK
     Dates: start: 20110506

REACTIONS (2)
  - LARYNGITIS [None]
  - SINUSITIS [None]
